FAERS Safety Report 5587797-2 (Version None)
Quarter: 2007Q4

REPORT INFORMATION
  Report Type: 
  Country: None (occurrence: None)
  Receive Date: 20071211
  Receipt Date: 20071026
  Transmission Date: 20080405
  Serious: No
  Sender: FDA-Public Use
  Company Number: 002#1#2007-00281

PATIENT
  Age: 68 Year
  Sex: Male
  Weight: 97.977 kg

DRUGS (6)
  1. NEUPRO [Suspect]
     Indication: PARKINSON'S DISEASE
     Dosage: 2MG/24H,1 IN 1 D,TRANSDERMAL
     Route: 062
     Dates: start: 20070919, end: 20071010
  2. ALOCRIL [Concomitant]
  3. AMANTADINE HCL [Concomitant]
  4. NICOTINE [Concomitant]
  5. STALENO [Concomitant]
  6. ARTANE [Concomitant]

REACTIONS (3)
  - APPLICATION SITE ERYTHEMA [None]
  - APPLICATION SITE PRURITUS [None]
  - APPLICATION SITE VESICLES [None]
